FAERS Safety Report 17528406 (Version 1)
Quarter: 2020Q1

REPORT INFORMATION
  Report Type: Report from Study
  Country: None (occurrence: ES)
  Receive Date: 20200312
  Receipt Date: 20200312
  Transmission Date: 20200409
  Serious: Yes (Other)
  Sender: FDA-Public Use
  Company Number: ES-ABBVIE-18S-144-2497461-00

PATIENT
  Age: 73 Year
  Sex: Male

DRUGS (1)
  1. DUODOPA [Suspect]
     Active Substance: CARBIDOPA\LEVODOPA
     Indication: PARKINSON^S DISEASE
     Route: 050
     Dates: start: 20131007, end: 201912

REACTIONS (5)
  - Stoma site odour [Recovering/Resolving]
  - Embedded device [Recovered/Resolved]
  - Stoma site infection [Recovering/Resolving]
  - Device issue [Recovering/Resolving]
  - Stoma site discharge [Recovering/Resolving]

NARRATIVE: CASE EVENT DATE: 201809
